FAERS Safety Report 15096563 (Version 1)
Quarter: 2018Q3

REPORT INFORMATION
  Report Type: Spontaneous
  Country: JP (occurrence: JP)
  Receive Date: 20180702
  Receipt Date: 20180702
  Transmission Date: 20181010
  Serious: Yes (Other)
  Sender: FDA-Public Use
  Company Number: PHJP2018JP008010

PATIENT

DRUGS (4)
  1. SANBETASON [Suspect]
     Active Substance: DEXAMETHASONE
     Indication: POSTOPERATIVE CARE
     Dosage: UNK UNK, QID
     Route: 047
     Dates: start: 20180327
  2. MEIACT [Concomitant]
     Active Substance: CEFDITOREN PIVOXIL
     Indication: PROPHYLAXIS
     Dosage: 100 MG, TID
     Route: 048
     Dates: start: 20180326, end: 20180331
  3. NEVANAC [Suspect]
     Active Substance: NEPAFENAC
     Indication: POSTOPERATIVE CARE
     Dosage: UNK UNK, TID
     Route: 047
     Dates: start: 20180327, end: 20180331
  4. CRAVIT [Suspect]
     Active Substance: LEVOFLOXACIN
     Indication: POSTOPERATIVE CARE
     Dosage: UNK UNK, QID
     Route: 047
     Dates: start: 20180327

REACTIONS (5)
  - Foreign body sensation in eyes [Unknown]
  - Blindness [Unknown]
  - Corneal epithelium defect [Unknown]
  - Corneal erosion [Unknown]
  - Corneal disorder [Recovering/Resolving]

NARRATIVE: CASE EVENT DATE: 201803
